FAERS Safety Report 6343028-7 (Version None)
Quarter: 2009Q3

REPORT INFORMATION
  Report Type: 
  Country: None (occurrence: None)
  Receive Date: 20090908
  Receipt Date: 20090902
  Transmission Date: 20100115
  Serious: Yes (Other)
  Sender: FDA-Public Use
  Company Number: DE-BRISTOL-MYERS SQUIBB COMPANY-14766984

PATIENT

DRUGS (1)
  1. ORENCIA [Suspect]
     Dosage: 2ND INFUSION

REACTIONS (1)
  - PULMONARY EMBOLISM [None]
